FAERS Safety Report 9652180 (Version 1)
Quarter: 2013Q4

REPORT INFORMATION
  Report Type: Spontaneous
  Country: AU (occurrence: None)
  Receive Date: 20131025
  Receipt Date: 20131025
  Transmission Date: 20140711
  Serious: Yes (Death)
  Sender: FDA-Public Use
  Company Number: 2013P1020353

PATIENT
  Age: 35 Year
  Sex: Female

DRUGS (3)
  1. ALBENDAZOLE [Suspect]
     Indication: HEPATIC ECHINOCOCCIASIS
     Dates: start: 1994, end: 1998
  2. MEBENDAZOLE [Concomitant]
  3. INTERFERON GAMMA TREATMENT [Concomitant]

REACTIONS (7)
  - Alopecia [None]
  - Oedema peripheral [None]
  - Respiratory failure [None]
  - Lung disorder [None]
  - Hepatic lesion [None]
  - Disease progression [None]
  - Therapy cessation [None]
